FAERS Safety Report 12052507 (Version 5)
Quarter: 2016Q1

REPORT INFORMATION
  Report Type: Report from Study
  Country: US (occurrence: US)
  Receive Date: 20160209
  Receipt Date: 20160316
  Transmission Date: 20160526
  Serious: Yes (Hospitalization, Other)
  Sender: FDA-Public Use
  Company Number: US-ALEXION PHARMACEUTICALS INC-A201600604

PATIENT
  Sex: Female

DRUGS (1)
  1. SOLIRIS [Suspect]
     Active Substance: ECULIZUMAB
     Indication: HAEMOLYTIC URAEMIC SYNDROME
     Dosage: UNK
     Route: 042

REACTIONS (12)
  - Eye infection fungal [Not Recovered/Not Resolved]
  - Rectal haemorrhage [Recovered/Resolved]
  - Haemoglobin decreased [Unknown]
  - Decreased appetite [Not Recovered/Not Resolved]
  - Device related infection [Unknown]
  - Large intestinal ulcer [Recovered/Resolved]
  - Back pain [Not Recovered/Not Resolved]
  - Abdominal distension [Not Recovered/Not Resolved]
  - Abscess [Not Recovered/Not Resolved]
  - Nausea [Unknown]
  - Colitis [Unknown]
  - Depression [Unknown]

NARRATIVE: CASE EVENT DATE: 201601
